FAERS Safety Report 10685836 (Version 1)
Quarter: 2014Q4

REPORT INFORMATION
  Report Type: Spontaneous
  Country: PE (occurrence: PE)
  Receive Date: 20141231
  Receipt Date: 20141231
  Transmission Date: 20150529
  Serious: Yes (Other)
  Sender: FDA-Public Use
  Company Number: PE-PFIZER INC-2014360861

PATIENT
  Age: 34 Year
  Sex: Female

DRUGS (1)
  1. TERRAMICINA (OXYTETRACYCLINE HYDROCHLORIDE\POLYMYXIN B SULFATE) [Suspect]
     Active Substance: OXYTETRACYCLINE HYDROCHLORIDE\POLYMYXIN B SULFATE
     Indication: EYE DISORDER
     Dosage: 1 DF, 1X/DAY
     Route: 047
     Dates: start: 1994

REACTIONS (1)
  - Dependence [Unknown]
